FAERS Safety Report 7371423-6 (Version None)
Quarter: 2011Q1

REPORT INFORMATION
  Report Type: 
  Country: None (occurrence: None)
  Receive Date: 20110324
  Receipt Date: 20110309
  Transmission Date: 20110831
  Serious: Yes (Other)
  Sender: FDA-Public Use
  Company Number: CH-RANBAXY-2011RR-42914

PATIENT
  Age: 88 Year
  Sex: Female

DRUGS (2)
  1. SIMVASTATIN [Suspect]
     Dosage: 40 MG, QD
  2. CLARITHROMYCIN [Suspect]
     Indication: BRONCHITIS
     Dosage: UNK

REACTIONS (4)
  - RHABDOMYOLYSIS [None]
  - HEPATOCELLULAR INJURY [None]
  - RENAL IMPAIRMENT [None]
  - DRUG INTERACTION [None]
